FAERS Safety Report 24714746 (Version 1)
Quarter: 2024Q4

REPORT INFORMATION
  Report Type: Spontaneous
  Country: GB (occurrence: GB)
  Receive Date: 20241210
  Receipt Date: 20241210
  Transmission Date: 20250114
  Serious: Yes (Other)
  Sender: NOVO NORDISK
  Company Number: None

PATIENT
  Age: 55 Year
  Sex: Female
  Weight: 89 kg

DRUGS (1)
  1. WEGOVY [Suspect]
     Active Substance: SEMAGLUTIDE
     Indication: Weight control
     Dosage: 2.4MG
     Dates: start: 20240619, end: 20241129

REACTIONS (1)
  - Thyroid cyst [Not Recovered/Not Resolved]
